FAERS Safety Report 6687568-X (Version None)
Quarter: 2010Q2

REPORT INFORMATION
  Report Type: 
  Country: None (occurrence: None)
  Receive Date: 20100419
  Receipt Date: 20100303
  Transmission Date: 20101027
  Serious: No
  Sender: FDA-Public Use
  Company Number: US-ABBOTT-10P-163-0628040-00

PATIENT
  Sex: Female
  Weight: 22.7 kg

DRUGS (2)
  1. LUPRON DEPOT-PED [Suspect]
     Indication: PRECOCIOUS PUBERTY
     Route: 030
     Dates: start: 20050101, end: 20090701
  2. LUPRON DEPOT-PED [Suspect]
     Route: 030
     Dates: start: 20090801

REACTIONS (1)
  - PROCEDURAL COMPLICATION [None]
